FAERS Safety Report 11928362 (Version 1)
Quarter: 2016Q1

REPORT INFORMATION
  Report Type: Spontaneous
  Country: US (occurrence: US)
  Receive Date: 20160119
  Receipt Date: 20160119
  Transmission Date: 20160526
  Serious: Yes (Other)
  Sender: FDA-Public Use
  Company Number: US-PFIZER INC-2016016078

PATIENT
  Age: 35 Year
  Sex: Female

DRUGS (4)
  1. HYDROCODONE [Concomitant]
     Active Substance: HYDROCODONE
     Indication: BACK PAIN
     Dosage: UNK
  2. LYRICA [Suspect]
     Active Substance: PREGABALIN
     Indication: NEURALGIA
     Dosage: UNK
     Route: 048
  3. LYRICA [Suspect]
     Active Substance: PREGABALIN
     Dosage: 200MG CAPSULE, 5 OR 6PER TIME
     Route: 048
     Dates: start: 2015
  4. LYRICA [Suspect]
     Active Substance: PREGABALIN
     Indication: BACK PAIN
     Dosage: 75 MG CAPSULE, 10-15 AT ONE TIME (WAIT 3 TO 4 DAYS IN EXCESS OF 10 TO 15 AT A TIME)
     Route: 048
     Dates: start: 2011

REACTIONS (4)
  - Euphoric mood [Unknown]
  - Psychomotor skills impaired [Unknown]
  - Drug abuse [Unknown]
  - Incoherent [Unknown]
